FAERS Safety Report 23193026 (Version 2)
Quarter: 2023Q4

REPORT INFORMATION
  Report Type: Spontaneous
  Country: GB (occurrence: GB)
  Receive Date: 20231116
  Receipt Date: 20231117
  Transmission Date: 20240109
  Serious: Yes (Death, Hospitalization, Other)
  Sender: FDA-Public Use
  Company Number: GB-002147023-NVSC2023GB242107

PATIENT
  Age: 77 Year
  Sex: Female

DRUGS (11)
  1. LUTATHERA [Suspect]
     Active Substance: LUTETIUM OXODOTREOTIDE LU-177
     Indication: Insulinoma
     Dosage: UNK
     Route: 065
  2. OCTREOTIDE [Suspect]
     Active Substance: OCTREOTIDE
     Indication: Insulinoma
     Dosage: UNK UNK, TID (50 MCG)
     Route: 058
  3. OCTREOTIDE [Suspect]
     Active Substance: OCTREOTIDE
     Dosage: UNK, TID (200 MCG)
     Route: 065
  4. OCTREOTIDE [Suspect]
     Active Substance: OCTREOTIDE
     Dosage: 10 MG (STARTING DOSE)
     Route: 065
  5. OCTREOTIDE [Suspect]
     Active Substance: OCTREOTIDE
     Dosage: 30 MG
     Route: 065
  6. EVEROLIMUS [Suspect]
     Active Substance: EVEROLIMUS
     Indication: Insulinoma
     Dosage: UNK
     Route: 065
  7. DEXAMETHASONE [Concomitant]
     Active Substance: DEXAMETHASONE
     Indication: Product used for unknown indication
     Dosage: 2 MG, BID
     Route: 065
  8. DIAZOXIDE [Concomitant]
     Active Substance: DIAZOXIDE
     Indication: Product used for unknown indication
     Dosage: UNK
     Route: 065
  9. BENDROFLUMETHIAZIDE [Concomitant]
     Active Substance: BENDROFLUMETHIAZIDE
     Indication: Oedema
     Dosage: 2.5 MG, QD
     Route: 065
  10. PASIREOTIDE [Concomitant]
     Active Substance: PASIREOTIDE
     Indication: Product used for unknown indication
     Dosage: 0.6 MG
     Route: 058
  11. GLUCAGON [Concomitant]
     Active Substance: GLUCAGON\GLUCAGON HYDROCHLORIDE\WATER
     Indication: Product used for unknown indication
     Dosage: UNK
     Route: 065

REACTIONS (7)
  - Death [Fatal]
  - Malignant neoplasm progression [Unknown]
  - Insulinoma [Unknown]
  - Hypoglycaemia [Unknown]
  - Hypoglycaemic seizure [Unknown]
  - Neutropenia [Unknown]
  - Sepsis [Unknown]
